FAERS Safety Report 8017505-7 (Version None)
Quarter: 2011Q4

REPORT INFORMATION
  Report Type: 
  Country: None (occurrence: None)
  Receive Date: 20111228
  Receipt Date: 20111228
  Transmission Date: 20120403
  Serious: No
  Sender: FDA-Public Use
  Company Number: None

PATIENT
  Sex: Female
  Weight: 56.246 kg

DRUGS (1)
  1. PRADAXA [Suspect]
     Indication: ANTICOAGULANT THERAPY
     Dosage: 150 MG 1X DAY
     Dates: start: 20110301, end: 20111201

REACTIONS (3)
  - MUSCULOSKELETAL CHEST PAIN [None]
  - CHEST PAIN [None]
  - ODYNOPHAGIA [None]
